FAERS Safety Report 16681638 (Version 1)
Quarter: 2019Q3

REPORT INFORMATION
  Report Type: Spontaneous
  Country: US (occurrence: US)
  Receive Date: 20190808
  Receipt Date: 20190808
  Transmission Date: 20191004
  Serious: No
  Sender: FDA-Public Use
  Company Number: US-ASTRAZENECA-2019SF02108

PATIENT
  Age: 80 Year
  Sex: Male

DRUGS (2)
  1. ACALABRUTINIB. [Suspect]
     Active Substance: ACALABRUTINIB
     Indication: CHRONIC LYMPHOCYTIC LEUKAEMIA REFRACTORY
     Route: 048
  2. IBRUTINIB [Concomitant]
     Active Substance: IBRUTINIB

REACTIONS (3)
  - Product use in unapproved indication [Unknown]
  - Haemorrhage [Recovering/Resolving]
  - Off label use [Unknown]
